FAERS Safety Report 16085084 (Version 1)
Quarter: 2019Q1

REPORT INFORMATION
  Report Type: Spontaneous
  Country: CN (occurrence: CN)
  Receive Date: 20190318
  Receipt Date: 20190318
  Transmission Date: 20190418
  Serious: Yes (Other)
  Sender: FDA-Public Use
  Company Number: PHHY2019CN050194

PATIENT
  Age: 36 Year
  Sex: Female

DRUGS (1)
  1. BENZYLPENICILLIN [Suspect]
     Active Substance: PENICILLIN G
     Indication: VULVAL ULCERATION
     Route: 042

REACTIONS (5)
  - Cutaneous lymphoma [Unknown]
  - Product use in unapproved indication [Unknown]
  - Vulval ulceration [Unknown]
  - Condition aggravated [Unknown]
  - Maternal exposure during pregnancy [Unknown]
